FAERS Safety Report 6413036-6 (Version None)
Quarter: 2009Q4

REPORT INFORMATION
  Report Type: 
  Country: None (occurrence: None)
  Receive Date: 20091023
  Receipt Date: 20091023
  Transmission Date: 20100525
  Serious: No
  Sender: FDA-Public Use
  Company Number: None

PATIENT
  Sex: Female
  Weight: 92.5338 kg

DRUGS (1)
  1. AZA SITE 31357-0040-25 [Suspect]
     Indication: EYE INFECTION
     Dosage: 1 DROP IN EACH DAY EYE AT NIGHT
     Dates: start: 20090927, end: 20090928

REACTIONS (3)
  - ABDOMINAL PAIN UPPER [None]
  - OROPHARYNGEAL PAIN [None]
  - PHARYNGEAL OEDEMA [None]
